FAERS Safety Report 15330687 (Version 4)
Quarter: 2018Q4

REPORT INFORMATION
  Report Type: Spontaneous
  Country: US (occurrence: US)
  Receive Date: 20180829
  Receipt Date: 20181012
  Transmission Date: 20190204
  Serious: Yes (Other)
  Sender: FDA-Public Use
  Company Number: PHEH2018US034770

PATIENT
  Sex: Female

DRUGS (1)
  1. LATANOPROST. [Suspect]
     Active Substance: LATANOPROST
     Indication: PRODUCT USED FOR UNKNOWN INDICATION
     Route: 047

REACTIONS (6)
  - Liquid product physical issue [Unknown]
  - Glaucoma [Unknown]
  - Product dropper issue [Unknown]
  - Eye irritation [Unknown]
  - Eye pain [Unknown]
  - Visual impairment [Unknown]
